FAERS Safety Report 12142895 (Version 4)
Quarter: 2020Q1

REPORT INFORMATION
  Report Type: Spontaneous
  Country: GB (occurrence: GB)
  Receive Date: 20160303
  Receipt Date: 20200227
  Transmission Date: 20200409
  Serious: Yes (Disabling)
  Sender: FDA-Public Use
  Company Number: GB-ALLERGAN-1637439US

PATIENT
  Sex: Male

DRUGS (4)
  1. ACULAR [Interacting]
     Active Substance: KETOROLAC TROMETHAMINE
     Indication: CATARACT OPERATION
     Dosage: 1 GTT, TID
     Route: 047
     Dates: start: 20160119, end: 20160219
  2. ACULAR [Suspect]
     Active Substance: KETOROLAC TROMETHAMINE
     Indication: POSTOPERATIVE CARE
     Dosage: UNK, TID
     Route: 047
     Dates: start: 20151109, end: 20151116
  3. MAXITROL [Interacting]
     Active Substance: DEXAMETHASONE\NEOMYCIN SULFATE\POLYMYXIN B SULFATE
     Indication: POSTOPERATIVE CARE
     Dosage: UNK, QID
     Route: 061
     Dates: start: 20151109, end: 20151116
  4. MAXITROL [Interacting]
     Active Substance: DEXAMETHASONE\NEOMYCIN SULFATE\POLYMYXIN B SULFATE
     Indication: CATARACT OPERATION
     Dosage: 1 GTT, QID
     Route: 061
     Dates: start: 20160119, end: 20160219

REACTIONS (6)
  - Blindness [Not Recovered/Not Resolved]
  - Corneal dystrophy [Unknown]
  - Visual impairment [Unknown]
  - Drug interaction [Unknown]
  - Corneal scar [Not Recovered/Not Resolved]
  - Ulcerative keratitis [Not Recovered/Not Resolved]
